FAERS Safety Report 5798726-0 (Version None)
Quarter: 2008Q3

REPORT INFORMATION
  Report Type: 
  Country: None (occurrence: None)
  Receive Date: 20080702
  Receipt Date: 20080623
  Transmission Date: 20090109
  Serious: Yes (Hospitalization, Other)
  Sender: FDA-Public Use
  Company Number: JP-SANOFI-SYNTHELABO-A01200804388

PATIENT
  Sex: Female
  Weight: 50 kg

DRUGS (7)
  1. PYDOXAL [Suspect]
     Indication: PALMAR-PLANTAR ERYTHRODYSAESTHESIA SYNDROME
     Dosage: 10 MG
     Route: 048
     Dates: start: 20080321, end: 20080409
  2. ISOVORIN [Suspect]
     Route: 041
     Dates: start: 20080319, end: 20080319
  3. KYTRIL [Concomitant]
     Indication: PREMEDICATION
     Dosage: 3 MG
     Route: 042
     Dates: start: 20080306, end: 20080409
  4. FLUOROURACIL [Suspect]
     Dosage: 575 MG/BODY=399.3 MG/M2 IN BOLUS THEN 3500 MG/BODY=2430.6 MG/M2 AS CONTINUOUS INFUSION
     Route: 042
     Dates: start: 20080319, end: 20080319
  5. PANTOSIN [Concomitant]
     Route: 048
     Dates: start: 20080320, end: 20080409
  6. ELPLAT [Suspect]
     Indication: COLON CANCER
     Route: 041
     Dates: start: 20080319, end: 20080319
  7. GASTER [Suspect]
     Indication: GASTRITIS PROPHYLAXIS
     Route: 048
     Dates: start: 20080321, end: 20080409

REACTIONS (2)
  - NEUTROPHIL COUNT DECREASED [None]
  - RHABDOMYOLYSIS [None]
